FAERS Safety Report 10706922 (Version 1)
Quarter: 2015Q1

REPORT INFORMATION
  Report Type: Spontaneous
  Country: US (occurrence: None)
  Receive Date: 20150112
  Receipt Date: 20150112
  Transmission Date: 20150721
  Serious: Yes (Hospitalization, Disabling, Other)
  Sender: FDA-Public Use
  Company Number: None

PATIENT
  Age: 40 Year
  Sex: Female
  Weight: 52.16 kg

DRUGS (2)
  1. LIDOCAINE WITH EPINEPHRINE [Suspect]
     Active Substance: EPINEPHRINE BITARTRATE\LIDOCAINE HYDROCHLORIDE
     Indication: BIOPSY SKIN
  2. LIDOCAINE WITH EPINEPHRINE [Suspect]
     Active Substance: EPINEPHRINE BITARTRATE\LIDOCAINE HYDROCHLORIDE
     Indication: MELANOCYTIC NAEVUS

REACTIONS (7)
  - Nerve injury [None]
  - Malaise [None]
  - Nasal discomfort [None]
  - Nasal disorder [None]
  - Asthenia [None]
  - Hypoaesthesia [None]
  - Skin lesion [None]

NARRATIVE: CASE EVENT DATE: 20140903
